FAERS Safety Report 8651733 (Version 2)
Quarter: 2012Q4

REPORT INFORMATION
  Report Type: Report from Study
  Country: JP (occurrence: JP)
  Receive Date: 20120706
  Receipt Date: 20121005
  Transmission Date: 20130627
  Serious: No
  Sender: FDA-Public Use
  Company Number: JP-ASTELLAS-2012JP006056

PATIENT
  Age: 33 Year
  Sex: Female

DRUGS (22)
  1. TACROLIMUS CAPSULES [Suspect]
     Indication: LUPUS NEPHRITIS
     Dosage: 3 mg, Unknown/D
     Route: 048
     Dates: start: 20110525, end: 20110831
  2. TACROLIMUS CAPSULES [Suspect]
     Dosage: 2 mg, Unknown/D
     Route: 048
     Dates: start: 20070509, end: 20070605
  3. TACROLIMUS CAPSULES [Suspect]
     Dosage: 3 mg, Unknown/D
     Route: 048
     Dates: start: 20070606, end: 20090114
  4. TACROLIMUS CAPSULES [Suspect]
     Dosage: 2 mg, Unknown/D
     Route: 048
     Dates: start: 20090114, end: 20100406
  5. TACROLIMUS CAPSULES [Suspect]
     Dosage: 3 mg, Unknown/D
     Route: 048
     Dates: start: 20100407, end: 201101
  6. MEDROL                             /00049601/ [Concomitant]
     Indication: LUPUS NEPHRITIS
     Dosage: 16 mg, Unknown/D
     Route: 048
     Dates: start: 20070411, end: 20070508
  7. MEDROL                             /00049601/ [Concomitant]
     Dosage: 12 mg, Unknown/D
     Route: 048
     Dates: start: 20070509, end: 20070522
  8. MEDROL                             /00049601/ [Concomitant]
     Dosage: 12 mg, Unknown/D
     Route: 048
     Dates: start: 20070523, end: 20070605
  9. MEDROL                             /00049601/ [Concomitant]
     Dosage: 8 mg, Unknown/D
     Route: 048
     Dates: start: 20070606, end: 20081021
  10. MEDROL                             /00049601/ [Concomitant]
     Dosage: 8 mg, Unknown/D
     Route: 048
     Dates: start: 20081022
  11. MEDROL                             /00049601/ [Concomitant]
     Dosage: UNK
     Route: 048
     Dates: end: 20100804
  12. MEDROL                             /00049601/ [Concomitant]
     Dosage: 8 mg, Unknown/D
     Route: 048
     Dates: start: 20100805, end: 201101
  13. MEDROL                             /00049601/ [Concomitant]
     Dosage: 24 mg, Unknown/D
     Route: 048
     Dates: start: 201101, end: 20110308
  14. MEDROL                             /00049601/ [Concomitant]
     Dosage: 20 mg, Unknown/D
     Route: 048
     Dates: start: 20110309, end: 20110322
  15. MEDROL                             /00049601/ [Concomitant]
     Dosage: 16 mg, Unknown/D
     Route: 048
     Dates: start: 20110323, end: 20110405
  16. MEDROL                             /00049601/ [Concomitant]
     Dosage: 12 mg, Unknown/D
     Route: 048
     Dates: start: 20110406, end: 20110524
  17. MEDROL                             /00049601/ [Concomitant]
     Dosage: 10 mg, Unknown/D
     Route: 048
     Dates: start: 20110525, end: 20110831
  18. METHYLPREDNISOLONE SODIUM SUCCINATE [Concomitant]
     Indication: LUPUS NEPHRITIS
     Dosage: 0.5 g, Unknown/D
     Route: 065
     Dates: start: 201101, end: 201101
  19. BUFFERIN                           /00002701/ [Concomitant]
     Indication: LUPUS NEPHRITIS
     Dosage: 81 mg, Unknown/D
     Route: 048
     Dates: end: 20110831
  20. GASTER [Concomitant]
     Indication: PROPHYLAXIS
     Dosage: 10 mg, Unknown/D
     Route: 048
     Dates: end: 20110831
  21. CALCIUM LACTATE [Concomitant]
     Indication: PROPHYLAXIS
     Dosage: 2 g, Unknown/D
     Route: 048
     Dates: end: 20110621
  22. ROCALTROL [Concomitant]
     Indication: PROPHYLAXIS
     Dosage: 0.5 ug, Unknown/D
     Route: 048
     Dates: end: 20110831

REACTIONS (1)
  - No adverse event [Unknown]
